FAERS Safety Report 6204219-9 (Version None)
Quarter: 2009Q2

REPORT INFORMATION
  Report Type: 
  Country: None (occurrence: None)
  Receive Date: 20090518
  Receipt Date: 20090206
  Transmission Date: 20091009
  Serious: No
  Sender: FDA-Public Use
  Company Number: WAES 0902USA01123

PATIENT
  Age: 72 Year
  Sex: Male

DRUGS (6)
  1. JANUVIA [Suspect]
     Indication: TYPE 2 DIABETES MELLITUS
     Dosage: 50 MG/DAILY/PO
     Route: 048
     Dates: start: 20081029
  2. COREG [Concomitant]
  3. CRESTOR [Concomitant]
  4. LANTUS [Concomitant]
  5. DILTIAZEM HYDROCHLORIDE [Concomitant]
  6. FUROSEMIDE [Concomitant]

REACTIONS (1)
  - ALOPECIA [None]
